FAERS Safety Report 9437272 (Version 1)
Quarter: 2013Q3

REPORT INFORMATION
  Report Type: Report from Study
  Country: DE (occurrence: DE)
  Receive Date: 20130802
  Receipt Date: 20130802
  Transmission Date: 20140515
  Serious: Yes (Other)
  Sender: FDA-Public Use
  Company Number: PHHY2013DE044724

PATIENT
  Sex: Male
  Weight: 80 kg

DRUGS (3)
  1. EXELON PATCH [Suspect]
     Indication: DEMENTIA
     Dosage: 4.6 MG/ 24 HOURS, DAILY
     Route: 062
     Dates: start: 201302
  2. EXELON PATCH [Suspect]
     Dosage: 9.5 MG/ 24 HOURS, DAILY
     Route: 062
     Dates: start: 201303, end: 201305
  3. VALSARTAN [Concomitant]
     Indication: HYPERTENSION
     Dosage: 40 MG, QD (DAILY)
     Dates: start: 2012

REACTIONS (6)
  - Wound [Not Recovered/Not Resolved]
  - Inflammation [Recovered/Resolved]
  - Application site erythema [Recovered/Resolved]
  - Application site pruritus [Not Recovered/Not Resolved]
  - Blister [Recovered/Resolved]
  - Cerebrovascular accident [Recovered/Resolved]
